FAERS Safety Report 6681098-7 (Version None)
Quarter: 2010Q2

REPORT INFORMATION
  Report Type: 
  Country: None (occurrence: None)
  Receive Date: 20100414
  Receipt Date: 20100407
  Transmission Date: 20101027
  Serious: Yes (Hospitalization)
  Sender: FDA-Public Use
  Company Number: GB-AMGEN-KDC404048

PATIENT
  Sex: Male
  Weight: 106.9 kg

DRUGS (10)
  1. NEULASTA [Suspect]
     Indication: DRUG USE FOR UNKNOWN INDICATION
     Route: 058
     Dates: start: 20091119, end: 20091119
  2. GEMCITABINE HCL [Concomitant]
     Route: 042
     Dates: start: 20091118, end: 20091118
  3. CYCLOPHOSPHAMIDE [Concomitant]
     Route: 042
     Dates: start: 20091111, end: 20091111
  4. VINCRISTINE [Concomitant]
     Route: 042
     Dates: start: 20091111, end: 20091111
  5. RITUXIMAB [Concomitant]
     Route: 042
     Dates: start: 20091111, end: 20091111
  6. PREDNISOLONE [Concomitant]
     Route: 048
     Dates: start: 20091111, end: 20091115
  7. ALLOPURINOL [Concomitant]
     Route: 048
     Dates: start: 20091111
  8. COTRIM [Concomitant]
     Route: 048
     Dates: start: 20091111
  9. LANSOPRAZOLE [Concomitant]
     Route: 048
     Dates: start: 20091111
  10. METOCLOPRAMIDE HYDROCHLORIDE [Concomitant]
     Route: 048
     Dates: start: 20091111, end: 20091114

REACTIONS (1)
  - CHEST PAIN [None]
